FAERS Safety Report 5278817-3 (Version None)
Quarter: 2007Q1

REPORT INFORMATION
  Report Type: 
  Country: None (occurrence: None)
  Receive Date: 20070328
  Receipt Date: 20070322
  Transmission Date: 20070707
  Serious: Yes (Hospitalization, Other)
  Sender: FDA-Public Use
  Company Number: CA-JNJFOC-20070305791

PATIENT
  Sex: Male

DRUGS (3)
  1. TYLENOL W/ CODEINE [Suspect]
     Indication: PROCEDURAL PAIN
     Route: 048
  2. EXTRA STRENGTH TYLENOL [Suspect]
     Route: 048
  3. EXTRA STRENGTH TYLENOL [Suspect]
     Indication: PROCEDURAL PAIN
     Route: 048

REACTIONS (2)
  - HEPATITIS A [None]
  - HEPATITIS TOXIC [None]
